FAERS Safety Report 4437559-4 (Version None)
Quarter: 2004Q3

REPORT INFORMATION
  Report Type: 
  Country: None (occurrence: None)
  Receive Date: 20040831
  Receipt Date: 20040820
  Transmission Date: 20050211
  Serious: Yes (Hospitalization)
  Sender: FDA-Public Use
  Company Number: 200416320US

PATIENT
  Sex: Male
  Weight: 75 kg

DRUGS (10)
  1. TAXOTERE [Suspect]
     Indication: NON-SMALL CELL LUNG CANCER
     Route: 042
     Dates: start: 20040409, end: 20040506
  2. GEMZAR [Suspect]
     Indication: NON-SMALL CELL LUNG CANCER
     Route: 042
     Dates: start: 20040409, end: 20040506
  3. TOPROL-XL [Concomitant]
     Indication: HYPERTENSION
  4. GLYBURIDE [Concomitant]
     Indication: DIABETES MELLITUS
  5. MEGACE [Concomitant]
     Indication: ANOREXIA
     Dates: start: 20040510
  6. ULTRAM [Concomitant]
     Indication: BACK PAIN
     Dates: start: 20040510
  7. BENADRYL [Concomitant]
     Indication: PROPHYLAXIS
     Dates: start: 20040506, end: 20040506
  8. ZOFRAN [Concomitant]
     Indication: PROPHYLAXIS
     Dates: start: 20040506, end: 20040506
  9. TAGAMET [Concomitant]
     Indication: PROPHYLAXIS
     Dates: start: 20040506, end: 20040506
  10. EPOGEN [Concomitant]
     Indication: ANAEMIA
     Dosage: DOSE: 40,000; DOSE UNIT: UNITS
     Dates: start: 20040506, end: 20040506

REACTIONS (6)
  - ADRENAL INSUFFICIENCY [None]
  - CONFUSIONAL STATE [None]
  - DEHYDRATION [None]
  - HYPOGLYCAEMIA [None]
  - HYPOTENSION [None]
  - PERONEAL NERVE PALSY [None]
